FAERS Safety Report 17808333 (Version 1)
Quarter: 2020Q2

REPORT INFORMATION
  Report Type: Spontaneous
  Country: DE (occurrence: DE)
  Receive Date: 20200520
  Receipt Date: 20200520
  Transmission Date: 20200714
  Serious: Yes (Hospitalization)
  Sender: FDA-Public Use
  Company Number: DE-ACCORD-182480

PATIENT
  Age: 20 Month
  Sex: Female
  Weight: 11 kg

DRUGS (1)
  1. ROSUVASTATIN. [Suspect]
     Active Substance: ROSUVASTATIN
     Dosage: DAILY DOSE: 10 MG MILLGRAM(S) EVERY 2 TOTAL
     Route: 048
     Dates: start: 20200326

REACTIONS (2)
  - Accidental exposure to product by child [Recovered/Resolved]
  - Product administration error [Unknown]

NARRATIVE: CASE EVENT DATE: 20200326
